FAERS Safety Report 7541336-5 (Version None)
Quarter: 2011Q2

REPORT INFORMATION
  Report Type: 
  Country: None (occurrence: None)
  Receive Date: 20110612
  Receipt Date: 20110531
  Transmission Date: 20111010
  Serious: Yes (Hospitalization, Other)
  Sender: FDA-Public Use
  Company Number: US-ELI_LILLY_AND_COMPANY-US201106000048

PATIENT
  Age: 55 Year
  Sex: Female
  Weight: 64.4 kg

DRUGS (5)
  1. OXYCONTIN [Concomitant]
     Indication: BACK INJURY
     Dosage: 20 MG, QD
     Route: 048
  2. CYMBALTA [Suspect]
     Indication: FIBROMYALGIA
     Dosage: 60 MG, QD
     Route: 048
  3. LYRICA [Concomitant]
     Indication: FIBROMYALGIA
     Dosage: 150 MG, QD
     Route: 048
     Dates: start: 20090101
  4. OXYCODONE HCL [Concomitant]
     Indication: FIBROMYALGIA
     Dosage: 40 MG, QD
     Route: 048
  5. XANAX [Concomitant]
     Indication: ANXIETY
     Dosage: 2 MG, QD
     Route: 048

REACTIONS (20)
  - RASH [None]
  - ABDOMINAL PAIN LOWER [None]
  - PAIN [None]
  - HYPERSENSITIVITY [None]
  - DRY MOUTH [None]
  - INSOMNIA [None]
  - WEIGHT FLUCTUATION [None]
  - SUICIDAL IDEATION [None]
  - FIBROMYALGIA [None]
  - BURNING SENSATION [None]
  - CHEST PAIN [None]
  - DYSPNOEA [None]
  - PARAESTHESIA [None]
  - DISTURBANCE IN ATTENTION [None]
  - MUSCULOSKELETAL DISCOMFORT [None]
  - VISION BLURRED [None]
  - MEMORY IMPAIRMENT [None]
  - ABASIA [None]
  - PAIN IN EXTREMITY [None]
  - HAND DEFORMITY [None]
